FAERS Safety Report 4633571-0 (Version None)
Quarter: 2005Q2

REPORT INFORMATION
  Report Type: 
  Country: None (occurrence: None)
  Receive Date: 20050411
  Receipt Date: 20050411
  Transmission Date: 20051028
  Serious: Yes (Other)
  Sender: FDA-Public Use
  Company Number: None

PATIENT
  Age: 39 Year
  Sex: Male
  Weight: 108.8633 kg

DRUGS (1)
  1. BEXTRA [Suspect]
     Indication: BACK PAIN
     Dosage: ONE TABLET  DAILY  ORAL
     Route: 048

REACTIONS (4)
  - DRY SKIN [None]
  - RASH [None]
  - SKIN DISORDER [None]
  - SWELLING FACE [None]
